FAERS Safety Report 4747407-0 (Version None)
Quarter: 2005Q3

REPORT INFORMATION
  Report Type: 
  Country: None (occurrence: None)
  Receive Date: 20050815
  Receipt Date: 20050504
  Transmission Date: 20060218
  Serious: No
  Sender: FDA-Public Use
  Company Number: USA050597310

PATIENT
  Age: 77 Year
  Sex: Male
  Weight: 68 kg

DRUGS (4)
  1. CIALIS [Suspect]
     Indication: ERECTILE DYSFUNCTION
     Dosage: 25 MG
  2. ADVAIR DISKUS 100/50 [Concomitant]
  3. SINGULAIR (MONTELUKAST) [Concomitant]
  4. THEOPHYLLINE [Concomitant]

REACTIONS (2)
  - DYSPEPSIA [None]
  - LIBIDO INCREASED [None]
